FAERS Safety Report 5295588-5 (Version None)
Quarter: 2007Q1

REPORT INFORMATION
  Report Type: 
  Country: None (occurrence: None)
  Receive Date: 20070201
  Receipt Date: 20061015
  Transmission Date: 20070707
  Serious: No
  Sender: FDA-Public Use
  Company Number: 2006PV023238

PATIENT
  Age: 63 Year
  Sex: Male
  Weight: 116.5744 kg

DRUGS (6)
  1. BYETTA [Suspect]
     Indication: DIABETES MELLITUS NON-INSULIN-DEPENDENT
     Dosage: 5 MCG;BID;SC
     Route: 058
     Dates: start: 20061012
  2. GLIPIZIDE [Concomitant]
  3. GLUCOPHAGE [Concomitant]
  4. GLUCOTROL XL [Concomitant]
  5. AVANDIA [Concomitant]
  6. CEPHALEXIN [Concomitant]

REACTIONS (3)
  - ERYTHEMA [None]
  - INSOMNIA [None]
  - PRURITUS GENERALISED [None]
